FAERS Safety Report 8551537-5 (Version None)
Quarter: 2012Q3

REPORT INFORMATION
  Report Type: 
  Country: None (occurrence: None)
  Receive Date: 20120730
  Receipt Date: 20120116
  Transmission Date: 20120928
  Serious: No
  Sender: FDA-Public Use
  Company Number: US-ALLERGAN-1200629US

PATIENT
  Sex: Female

DRUGS (2)
  1. ALPHAGAN P [Suspect]
     Indication: INTRAOCULAR PRESSURE TEST
     Dosage: 6 GTT, QD
     Route: 047
  2. LUMIGAN [Suspect]
     Indication: INTRAOCULAR PRESSURE TEST
     Dosage: 2 GTT, QHS
     Route: 047

REACTIONS (3)
  - EYELID SKIN DRYNESS [None]
  - EYELID PAIN [None]
  - EYELID SENSORY DISORDER [None]
